FAERS Safety Report 5716438-6 (Version None)
Quarter: 2008Q2

REPORT INFORMATION
  Report Type: 
  Country: None (occurrence: None)
  Receive Date: 20080424
  Receipt Date: 20080413
  Transmission Date: 20081010
  Serious: Yes (Death)
  Sender: FDA-Public Use
  Company Number: TH-BAXTER-2008BH002663

PATIENT
  Age: 80 Year
  Sex: Male

DRUGS (2)
  1. DIANEAL [Suspect]
     Indication: PERITONEAL DIALYSIS
     Route: 033
     Dates: start: 20060701
  2. DIANEAL [Suspect]
     Route: 033
     Dates: start: 20060701

REACTIONS (1)
  - DIABETES MELLITUS [None]
